FAERS Safety Report 10890494 (Version 2)
Quarter: 2015Q1

REPORT INFORMATION
  Report Type: Spontaneous
  Country: SE (occurrence: SE)
  Receive Date: 20150305
  Receipt Date: 20150318
  Transmission Date: 20150721
  Serious: Yes (Other)
  Sender: FDA-Public Use
  Company Number: SE-AMGEN-SWESP2015019275

PATIENT
  Sex: Female
  Weight: 65 kg

DRUGS (1)
  1. VECTIBIX [Suspect]
     Active Substance: PANITUMUMAB
     Indication: COLORECTAL CANCER METASTATIC
     Dosage: 375 MG, UNK
     Route: 042
     Dates: start: 20141014, end: 20141111

REACTIONS (6)
  - Rash [Not Recovered/Not Resolved]
  - Rash macular [Unknown]
  - Oral mucosal blistering [Unknown]
  - Wound haemorrhage [Unknown]
  - Wound [Unknown]
  - Abasia [Unknown]

NARRATIVE: CASE EVENT DATE: 2014
